FAERS Safety Report 6192241-0 (Version None)
Quarter: 2009Q2

REPORT INFORMATION
  Report Type: 
  Country: None (occurrence: None)
  Receive Date: 20090515
  Receipt Date: 20090514
  Transmission Date: 20091009
  Serious: Yes (Hospitalization, Disabling)
  Sender: FDA-Public Use
  Company Number: JP-B.I. PHARMACEUTICALS,INC./RIDGEFIELD-2009-BP-05984NB

PATIENT
  Sex: Male
  Weight: 68 kg

DRUGS (1)
  1. MICARDIS [Suspect]
     Indication: HYPERTENSION
     Dosage: 60MG
     Route: 048
     Dates: start: 20060520, end: 20080616

REACTIONS (1)
  - CEREBRAL INFARCTION [None]
